FAERS Safety Report 7914159-2 (Version None)
Quarter: 2011Q4

REPORT INFORMATION
  Report Type: 
  Country: None (occurrence: None)
  Receive Date: 20111115
  Receipt Date: 20111115
  Transmission Date: 20120403
  Serious: Yes (Other)
  Sender: FDA-Public Use
  Company Number: None

PATIENT
  Age: 33 Year
  Sex: Female
  Weight: 129.27 kg

DRUGS (1)
  1. SEASONIQUE [Suspect]
     Indication: DYSMENORRHOEA
     Dosage: 1 PILL
     Route: 048
     Dates: start: 20110101, end: 20110801

REACTIONS (2)
  - MAJOR DEPRESSION [None]
  - SUICIDAL IDEATION [None]
